FAERS Safety Report 9252756 (Version 1)
Quarter: 2013Q2

REPORT INFORMATION
  Report Type: Spontaneous
  Country: CN (occurrence: CN)
  Receive Date: 20130424
  Receipt Date: 20130424
  Transmission Date: 20140414
  Serious: Yes (Death)
  Sender: FDA-Public Use
  Company Number: CN-BRISTOL-MYERS SQUIBB COMPANY-18790519

PATIENT
  Sex: 0

DRUGS (1)
  1. COAPROVEL TABS 150MG/12.5MG [Suspect]
     Dosage: 1DF: 1 TAB
     Route: 048

REACTIONS (2)
  - Cerebral infarction [Fatal]
  - Medication error [Unknown]
